FAERS Safety Report 15700234 (Version 2)
Quarter: 2019Q2

REPORT INFORMATION
  Report Type: Spontaneous
  Country: US (occurrence: US)
  Receive Date: 20181207
  Receipt Date: 20190517
  Transmission Date: 20190711
  Serious: Yes (Other)
  Sender: FDA-Public Use
  Company Number: US-ASTRAZENECA-2018SF57007

PATIENT
  Age: 67 Year
  Sex: Female
  Weight: 89.4 kg

DRUGS (20)
  1. CYCLOBENZAPRINE. [Concomitant]
     Active Substance: CYCLOBENZAPRINE
  2. TIMOLOL. [Concomitant]
     Active Substance: TIMOLOL
     Indication: GLAUCOMA
  3. RANITIDINE. [Concomitant]
     Active Substance: RANITIDINE
  4. NEXIUM [Suspect]
     Active Substance: ESOMEPRAZOLE MAGNESIUM
     Indication: GASTROOESOPHAGEAL REFLUX DISEASE
     Route: 048
     Dates: start: 2006, end: 2016
  5. FLUCONAZOLE. [Concomitant]
     Active Substance: FLUCONAZOLE
  6. CLEOCIN [Concomitant]
     Active Substance: CLINDAMYCIN PHOSPHATE
  7. NEXIUM [Suspect]
     Active Substance: ESOMEPRAZOLE MAGNESIUM
     Indication: GASTROOESOPHAGEAL REFLUX DISEASE
     Route: 048
     Dates: start: 2009, end: 2017
  8. NEXIUM [Suspect]
     Active Substance: ESOMEPRAZOLE MAGNESIUM
     Indication: GASTROOESOPHAGEAL REFLUX DISEASE
     Dosage: GENERIC
     Route: 065
     Dates: start: 2015, end: 2016
  9. HYDROCHLOROTHIAZIDE. [Concomitant]
     Active Substance: HYDROCHLOROTHIAZIDE
  10. LISINOPRIL. [Concomitant]
     Active Substance: LISINOPRIL
  11. TRAZODONE [Concomitant]
     Active Substance: TRAZODONE HYDROCHLORIDE
  12. BUPROPION. [Concomitant]
     Active Substance: BUPROPION
  13. PAROXETINE. [Concomitant]
     Active Substance: PAROXETINE
  14. ABILIFY [Concomitant]
     Active Substance: ARIPIPRAZOLE
  15. AZOPT [Concomitant]
     Active Substance: BRINZOLAMIDE
  16. DIAZEPAM. [Concomitant]
     Active Substance: DIAZEPAM
  17. PAROXETINE. [Concomitant]
     Active Substance: PAROXETINE
  18. METFORMIN [Concomitant]
     Active Substance: METFORMIN HYDROCHLORIDE
     Indication: DIABETES MELLITUS
  19. ZANTAC [Concomitant]
     Active Substance: RANITIDINE HYDROCHLORIDE
  20. BUPROPION. [Concomitant]
     Active Substance: BUPROPION

REACTIONS (1)
  - Chronic kidney disease [Not Recovered/Not Resolved]

NARRATIVE: CASE EVENT DATE: 2015
